FAERS Safety Report 19085613 (Version 2)
Quarter: 2021Q2

REPORT INFORMATION
  Report Type: Spontaneous
  Country: GB (occurrence: GB)
  Receive Date: 20210401
  Receipt Date: 20210414
  Transmission Date: 20210717
  Serious: Yes (Other)
  Sender: FDA-Public Use
  Company Number: GB-SUN PHARMACEUTICAL INDUSTRIES LTD-2021RR-288783

PATIENT
  Age: 62 Year
  Sex: Male
  Weight: 84 kg

DRUGS (5)
  1. CIMETIDINE [Concomitant]
     Active Substance: CIMETIDINE
     Indication: ILL-DEFINED DISORDER
     Dosage: 10ML DAILY. (TABLETS OUT OF STOCK)
     Route: 065
     Dates: start: 20200709, end: 20210224
  2. PANTOPRAZOLE [Concomitant]
     Active Substance: PANTOPRAZOLE
     Indication: ILL-DEFINED DISORDER
     Dosage: ONE A DAY HALF AN HOUR BEFORE BREAKFAST
     Route: 065
     Dates: start: 20190930, end: 20210128
  3. ESOMEPRAZOLE. [Concomitant]
     Active Substance: ESOMEPRAZOLE MAGNESIUM
     Indication: ILL-DEFINED DISORDER
     Dosage: TAKE ONE TWICE DAILY
     Route: 065
     Dates: start: 20210128
  4. OMEPRAZOLE. [Concomitant]
     Active Substance: OMEPRAZOLE
     Indication: ILL-DEFINED DISORDER
     Dosage: TAKE TWO DAILY TO REDUCE STOMACH ACID
     Route: 065
     Dates: start: 20210316
  5. ESOMEPRAZOLE. [Suspect]
     Active Substance: ESOMEPRAZOLE MAGNESIUM
     Indication: ILL-DEFINED DISORDER
     Dosage: UNK
     Route: 065
     Dates: start: 20210316

REACTIONS (1)
  - Rash [Unknown]

NARRATIVE: CASE EVENT DATE: 20210316
